FAERS Safety Report 10210759 (Version 1)
Quarter: 2014Q2

REPORT INFORMATION
  Report Type: Spontaneous
  Country: US (occurrence: None)
  Receive Date: 20140529
  Receipt Date: 20140529
  Transmission Date: 20141212
  Serious: Yes (Hospitalization, Other)
  Sender: FDA-Public Use
  Company Number: None

PATIENT
  Age: 32 Year
  Sex: Male

DRUGS (1)
  1. OXANDROLONE [Suspect]
     Indication: MUSCLE BUILDING THERAPY
     Dates: start: 20110901, end: 20110930

REACTIONS (13)
  - Drug-induced liver injury [None]
  - Jaundice [None]
  - Renal failure acute [None]
  - Haemobilia [None]
  - Vascular pseudoaneurysm [None]
  - Thrombosis [None]
  - Post procedural haemorrhage [None]
  - Cholestasis [None]
  - Hepatic haematoma [None]
  - Pneumobilia [None]
  - Hepatic infarction [None]
  - Ascites [None]
  - Post procedural complication [None]
